FAERS Safety Report 6288217-5 (Version None)
Quarter: 2009Q3

REPORT INFORMATION
  Report Type: 
  Country: None (occurrence: None)
  Receive Date: 20090723
  Receipt Date: 20090429
  Transmission Date: 20100115
  Serious: Yes (Other)
  Sender: FDA-Public Use
  Company Number: WWISSUE-286.1

PATIENT
  Sex: Male

DRUGS (2)
  1. CHLOROQUINE PHOSPHATE [Suspect]
     Dosage: ORAL
     Route: 048
     Dates: start: 20070401, end: 20090401
  2. TESTOSTERONE [Concomitant]

REACTIONS (2)
  - DIARRHOEA [None]
  - VOMITING [None]
